FAERS Safety Report 19932510 (Version 2)
Quarter: 2021Q4

REPORT INFORMATION
  Report Type: Spontaneous
  Country: US (occurrence: US)
  Receive Date: 20211008
  Receipt Date: 20211013
  Transmission Date: 20220303
  Serious: Yes (Other)
  Sender: FDA-Public Use
  Company Number: US-PFIZER INC-202101265752

PATIENT
  Age: 64 Year
  Sex: Female

DRUGS (2)
  1. SULFAMETHOXAZOLE\TRIMETHOPRIM [Suspect]
     Active Substance: SULFAMETHOXAZOLE\TRIMETHOPRIM
     Indication: Nocardiosis
     Dosage: UNK, 2X/DAY, SIX-MONTH COURSE, 2DS
  2. CEFPODOXIME [Concomitant]
     Active Substance: CEFPODOXIME
     Indication: Nocardiosis
     Dosage: 200 MG

REACTIONS (1)
  - Calculus urinary [Recovered/Resolved]
